FAERS Safety Report 23606638 (Version 3)
Quarter: 2024Q2

REPORT INFORMATION
  Report Type: Spontaneous
  Country: US (occurrence: US)
  Receive Date: 20240307
  Receipt Date: 20240501
  Transmission Date: 20240716
  Serious: Yes (Other)
  Sender: FDA-Public Use
  Company Number: US-SA-SAC20240306000116

PATIENT
  Age: 65 Year
  Sex: Female
  Weight: 83 kg

DRUGS (52)
  1. DUPIXENT [Suspect]
     Active Substance: DUPILUMAB
     Indication: Asthma
     Dosage: 300 MG, QOW
     Route: 058
  2. AMIKACIN [Concomitant]
     Active Substance: AMIKACIN
  3. ITRACONAZOLE [Concomitant]
     Active Substance: ITRACONAZOLE
  4. VANCOMYCIN [Concomitant]
     Active Substance: VANCOMYCIN
  5. BUDESONIDE [Concomitant]
     Active Substance: BUDESONIDE
  6. BUDESONIDE [Concomitant]
     Active Substance: BUDESONIDE
  7. MYLANTA MAXIMUM STRENGTH [Concomitant]
     Active Substance: ALUMINUM HYDROXIDE\DIMETHICONE\MAGNESIUM HYDROXIDE
     Dosage: UNK
  8. ALBUTEROL SULFATE [Concomitant]
     Active Substance: ALBUTEROL SULFATE
  9. ALBUTEROL SULFATE [Concomitant]
     Active Substance: ALBUTEROL SULFATE
  10. NYSTATIN [Concomitant]
     Active Substance: NYSTATIN
     Dosage: UNK
  11. NYSTATIN [Concomitant]
     Active Substance: NYSTATIN
  12. ASPIRIN [Concomitant]
     Active Substance: ASPIRIN
  13. ASPIRIN [Concomitant]
     Active Substance: ASPIRIN
     Route: 048
  14. VITAMIN D3 [Concomitant]
     Active Substance: CHOLECALCIFEROL
  15. VITAMIN D3 [Concomitant]
     Active Substance: CHOLECALCIFEROL
  16. NITROGLYCERIN [Concomitant]
     Active Substance: NITROGLYCERIN
  17. NITROGLYCERIN [Concomitant]
     Active Substance: NITROGLYCERIN
  18. PREVACID [Concomitant]
     Active Substance: LANSOPRAZOLE
  19. PREVACID [Concomitant]
     Active Substance: LANSOPRAZOLE
  20. ACETAMINOPHEN [Concomitant]
     Active Substance: ACETAMINOPHEN
  21. ACETAMINOPHEN [Concomitant]
     Active Substance: ACETAMINOPHEN
  22. DIPHENHYDRAMINE HYDROCHLORIDE [Concomitant]
     Active Substance: DIPHENHYDRAMINE HYDROCHLORIDE
     Dosage: UNK
  23. DIPHENHYDRAMINE HYDROCHLORIDE [Concomitant]
     Active Substance: DIPHENHYDRAMINE HYDROCHLORIDE
  24. LIDOCAINE [Concomitant]
     Active Substance: LIDOCAINE
  25. EPINEPHRINE [Concomitant]
     Active Substance: EPINEPHRINE
  26. EPINEPHRINE [Concomitant]
     Active Substance: EPINEPHRINE
  27. GAMMAGARD [Concomitant]
     Active Substance: HUMAN IMMUNOGLOBULIN G
  28. GAMMAGARD [Concomitant]
     Active Substance: HUMAN IMMUNOGLOBULIN G
  29. ASTEPRO [Concomitant]
     Active Substance: AZELASTINE HYDROCHLORIDE
  30. ASTEPRO [Concomitant]
     Active Substance: AZELASTINE HYDROCHLORIDE
  31. SYNTHROID [Concomitant]
     Active Substance: LEVOTHYROXINE SODIUM
  32. SYNTHROID [Concomitant]
     Active Substance: LEVOTHYROXINE SODIUM
  33. MUCINEX [Concomitant]
     Active Substance: GUAIFENESIN
  34. MUCINEX [Concomitant]
     Active Substance: GUAIFENESIN
  35. FLUTICASONE PROPIONATE [Concomitant]
     Active Substance: FLUTICASONE PROPIONATE
  36. FLUTICASONE PROPIONATE [Concomitant]
     Active Substance: FLUTICASONE PROPIONATE
  37. ROSUVASTATIN CALCIUM [Concomitant]
     Active Substance: ROSUVASTATIN CALCIUM
     Dosage: UNK
  38. ROSUVASTATIN CALCIUM [Concomitant]
     Active Substance: ROSUVASTATIN CALCIUM
  39. VALSARTAN [Concomitant]
     Active Substance: VALSARTAN
  40. VALSARTAN [Concomitant]
     Active Substance: VALSARTAN
  41. SINGULAIR [Concomitant]
     Active Substance: MONTELUKAST SODIUM
  42. SINGULAIR [Concomitant]
     Active Substance: MONTELUKAST SODIUM
  43. SYMBICORT [Concomitant]
     Active Substance: BUDESONIDE\FORMOTEROL FUMARATE DIHYDRATE
  44. SYMBICORT [Concomitant]
     Active Substance: BUDESONIDE\FORMOTEROL FUMARATE DIHYDRATE
  45. VITAMINS NOS [Concomitant]
     Active Substance: VITAMINS
  46. SODIUM CHLORIDE [Concomitant]
     Active Substance: SODIUM CHLORIDE
  47. GOODY^S EXTRA STRENGTH [Concomitant]
  48. CIMETIDINE [Concomitant]
     Active Substance: CIMETIDINE
     Dosage: UNK
  49. CIMETIDINE [Concomitant]
     Active Substance: CIMETIDINE
  50. LEVSIN SL [Concomitant]
     Active Substance: HYOSCYAMINE SULFATE
     Dosage: UNK
  51. LEVSIN SL [Concomitant]
     Active Substance: HYOSCYAMINE SULFATE
  52. PANTOPRAZOLE SODIUM [Concomitant]
     Active Substance: PANTOPRAZOLE SODIUM
     Dosage: UNK

REACTIONS (6)
  - Pseudomonas infection [Unknown]
  - Corynebacterium infection [Unknown]
  - Cough [Unknown]
  - Gastrooesophageal reflux disease [Unknown]
  - Sinus pain [Recovering/Resolving]
  - Bronchial disorder [Unknown]

NARRATIVE: CASE EVENT DATE: 20240101
